FAERS Safety Report 7099474 (Version 3)
Quarter: 2014Q3

REPORT INFORMATION
  Report Type: Spontaneous
  Country: US (occurrence: None)
  Receive Date: 20090820
  Receipt Date: 20140918
  Transmission Date: 20150326
  Serious: Yes (Hospitalization, Other)
  Sender: FDA-Public Use
  Company Number: 2009S1006660

PATIENT
  Age: 62 Year
  Sex: Female
  Weight: 87 kg

DRUGS (8)
  1. PROZAC [Concomitant]
     Active Substance: FLUOXETINE HYDROCHLORIDE
  2. PHOSPHO-SODA [Suspect]
     Active Substance: SODIUM PHOSPHATE, DIBASIC\SODIUM PHOSPHATE, MONOBASIC
     Indication: COLONOSCOPY
     Dosage: TOTAL, ORAL
     Route: 048
     Dates: start: 20040418, end: 20040418
  3. TEGRETOL (CARBAMAZEPINE) [Concomitant]
  4. L-THYROXINE (LEVOTHYROXINE) [Concomitant]
     Active Substance: LEVOTHYROXINE
  5. HYDRALAZINE (HYDRALAZINE) [Concomitant]
     Active Substance: HYDRALAZINE HYDROCHLORIDE
  6. LISINOPRIL (LISINOPRIL) [Concomitant]
     Active Substance: LISINOPRIL
  7. NORVASC [Concomitant]
     Active Substance: AMLODIPINE BESYLATE
  8. NEURONTIN [Concomitant]
     Active Substance: GABAPENTIN

REACTIONS (16)
  - Hypoxia [None]
  - Vomiting [None]
  - Decreased appetite [None]
  - Weight decreased [None]
  - Lethargy [None]
  - Asthenia [None]
  - Renal failure chronic [None]
  - Anaemia [None]
  - Hyperparathyroidism secondary [None]
  - Fluid overload [None]
  - Renal tubular necrosis [None]
  - Dialysis [None]
  - Crystal nephropathy [None]
  - Renal transplant [None]
  - Nausea [None]
  - Renal failure acute [None]

NARRATIVE: CASE EVENT DATE: 20040424
